FAERS Safety Report 6967641-9 (Version None)
Quarter: 2010Q3

REPORT INFORMATION
  Report Type: 
  Country: None (occurrence: None)
  Receive Date: 20100901
  Receipt Date: 20100824
  Transmission Date: 20110219
  Serious: Yes (Hospitalization)
  Sender: FDA-Public Use
  Company Number: 678394

PATIENT
  Sex: Male

DRUGS (6)
  1. CARBOPLATIN [Suspect]
     Indication: LUNG NEOPLASM MALIGNANT
     Dosage: 480 MG MILLIGRAM(S), INTRAVENOUS
     Route: 042
     Dates: start: 20100713, end: 20100713
  2. NAVELBINE [Suspect]
     Indication: LUNG NEOPLASM MALIGNANT
     Dosage: 120 MG MILLIGRAM(S), ORAL
     Route: 048
     Dates: start: 20100713, end: 20100713
  3. (BENDROFLUMETHIAZIDE) [Concomitant]
  4. CANDESARTAN CILEXETIL [Concomitant]
  5. DALTEPARIN SODIUM [Concomitant]
  6. FOLIC ACID [Concomitant]

REACTIONS (2)
  - FEMORAL ARTERY OCCLUSION [None]
  - PERIPHERAL ISCHAEMIA [None]
